FAERS Safety Report 4536523-4 (Version None)
Quarter: 2004Q4

REPORT INFORMATION
  Report Type: 
  Country: None (occurrence: None)
  Receive Date: 20041223
  Receipt Date: 20041215
  Transmission Date: 20050328
  Serious: Yes (Hospitalization)
  Sender: FDA-Public Use
  Company Number: CA-JNJFOC-20040500472

PATIENT
  Age: 40 Year
  Sex: Male

DRUGS (7)
  1. REMICADE [Suspect]
     Route: 042
  2. REMICADE [Suspect]
     Indication: CROHN'S DISEASE
     Route: 042
  3. OXYCODONE HCL [Concomitant]
  4. PREDNISONE [Concomitant]
  5. VIOXX [Concomitant]
  6. PREVACID [Concomitant]
  7. PROTOPIC [Concomitant]

REACTIONS (3)
  - DEPRESSED LEVEL OF CONSCIOUSNESS [None]
  - ENCEPHALITIS VIRAL [None]
  - MENTAL STATUS CHANGES [None]
